FAERS Safety Report 6967031-9 (Version None)
Quarter: 2010Q3

REPORT INFORMATION
  Report Type: 
  Country: None (occurrence: None)
  Receive Date: 20100907
  Receipt Date: 20100818
  Transmission Date: 20110219
  Serious: Yes (Hospitalization)
  Sender: FDA-Public Use
  Company Number: US-BAYER-201016831NA

PATIENT
  Sex: Female
  Weight: 68 kg

DRUGS (5)
  1. YAZ [Suspect]
     Indication: ORAL CONTRACEPTION
     Route: 048
     Dates: start: 20080401, end: 20090401
  2. NSAID'S [Concomitant]
  3. WELCHOL [Concomitant]
  4. LOESTRIN 1.5/30 [Concomitant]
     Dates: start: 20090524
  5. IMODIUM [Concomitant]
     Indication: DIARRHOEA

REACTIONS (1)
  - CHOLECYSTITIS [None]
